FAERS Safety Report 20160782 (Version 1)
Quarter: 2021Q4

REPORT INFORMATION
  Report Type: Spontaneous
  Country: CN (occurrence: CN)
  Receive Date: 20211208
  Receipt Date: 20211208
  Transmission Date: 20220304
  Serious: Yes (Life-Threatening)
  Sender: FDA-Public Use
  Company Number: CN-BAYER-2021A260759

PATIENT
  Age: 62 Year
  Sex: Male

DRUGS (2)
  1. SORAFENIB [Suspect]
     Active Substance: SORAFENIB
     Indication: Hepatocellular carcinoma
     Dosage: 400 MG, BID
     Route: 048
     Dates: start: 202001, end: 2020
  2. SINTILIMAB [Suspect]
     Active Substance: SINTILIMAB
     Indication: Hepatocellular carcinoma
     Dosage: 200 MG, Q2WK
     Route: 042
     Dates: start: 202001, end: 2020

REACTIONS (1)
  - Immune-mediated hepatitis [Recovered/Resolved]

NARRATIVE: CASE EVENT DATE: 20200101
